FAERS Safety Report 7594280-1 (Version None)
Quarter: 2011Q3

REPORT INFORMATION
  Report Type: 
  Country: None (occurrence: None)
  Receive Date: 20110706
  Receipt Date: 20110627
  Transmission Date: 20111222
  Serious: Yes (Other)
  Sender: FDA-Public Use
  Company Number: BR-ASTRAZENECA-2011SE02293

PATIENT
  Age: 40 Year
  Sex: Female
  Weight: 110 kg

DRUGS (2)
  1. ATACAND HCT [Suspect]
     Indication: HYPERTENSION
     Dosage: 16/12.5 MG DAILY
     Route: 048
     Dates: start: 20030101, end: 20100101
  2. ATACAND HCT [Suspect]
     Dosage: 16/12.5 MG BID
     Route: 048
     Dates: start: 20100101, end: 20101201

REACTIONS (5)
  - DIABETES MELLITUS [None]
  - FATIGUE [None]
  - HYPOAESTHESIA [None]
  - DRUG INEFFECTIVE [None]
  - BLOOD PRESSURE INADEQUATELY CONTROLLED [None]
